FAERS Safety Report 24612409 (Version 1)
Quarter: 2024Q4

REPORT INFORMATION
  Report Type: Report from Study
  Country: GB (occurrence: GB)
  Receive Date: 20241113
  Receipt Date: 20241113
  Transmission Date: 20250115
  Serious: Yes (Hospitalization)
  Sender: UCB
  Company Number: GB-UCBSA-2024058031

PATIENT
  Sex: Male

DRUGS (1)
  1. BIMEKIZUMAB [Suspect]
     Active Substance: BIMEKIZUMAB
     Indication: Psoriasis
     Dosage: 160MG UNK
     Route: 058
     Dates: start: 202306

REACTIONS (2)
  - Cellulitis [Unknown]
  - Decreased immune responsiveness [Unknown]
